FAERS Safety Report 5766595-0 (Version None)
Quarter: 2008Q2

REPORT INFORMATION
  Report Type: 
  Country: None (occurrence: None)
  Receive Date: 20080610
  Receipt Date: 20080610
  Transmission Date: 20081010
  Serious: Yes (Other)
  Sender: FDA-Public Use
  Company Number: None

PATIENT
  Age: 38 Year
  Sex: Female
  Weight: 54.4316 kg

DRUGS (1)
  1. LEXAPRO [Suspect]
     Indication: DEPRESSION
     Dosage: 10 MG QAM PO
     Route: 048
     Dates: start: 20080501, end: 20080530

REACTIONS (3)
  - EYE PAIN [None]
  - MYDRIASIS [None]
  - VISION BLURRED [None]
